FAERS Safety Report 5235287-9 (Version None)
Quarter: 2007Q1

REPORT INFORMATION
  Report Type: 
  Country: None (occurrence: None)
  Receive Date: 20061208
  Receipt Date: 20060710
  Transmission Date: 20070707
  Serious: Yes (Other)
  Sender: FDA-Public Use
  Company Number: 2006UW14179

PATIENT
  Age: 72 Year
  Sex: Female
  Weight: 75.296 kg

DRUGS (5)
  1. CRESTOR [Suspect]
     Indication: BLOOD CHOLESTEROL INCREASED
     Dosage: 5 MG PO
     Route: 048
  2. NORVASC /GR/ [Concomitant]
  3. CLIMARA ^SCHERING^ [Concomitant]
  4. ZETIA [Concomitant]
  5. LEVOXYL [Concomitant]

REACTIONS (1)
  - AGEUSIA [None]
